FAERS Safety Report 17597943 (Version 1)
Quarter: 2020Q1

REPORT INFORMATION
  Report Type: Spontaneous
  Country: JM (occurrence: JM)
  Receive Date: 20200327
  Receipt Date: 20200327
  Transmission Date: 20200409
  Serious: Yes (Life-Threatening, Hospitalization, Disabling, Congenital Anomaly, Other)
  Sender: FDA-Public Use
  Company Number: None

PATIENT
  Age: 36 Year
  Sex: Female
  Weight: 58.5 kg

DRUGS (3)
  1. SEROQUEL [Suspect]
     Active Substance: QUETIAPINE FUMARATE
     Route: 048
  2. COGENTIN [Suspect]
     Active Substance: BENZTROPINE MESYLATE
  3. EPILIM [Suspect]
     Active Substance: VALPROATE SODIUM
     Route: 048

REACTIONS (11)
  - Pregnancy [None]
  - Constipation [None]
  - Vomiting [None]
  - Exposure during pregnancy [None]
  - Uterine leiomyoma [None]
  - Lack of satiety [None]
  - Diarrhoea [None]
  - Abortion induced [None]
  - Respiration abnormal [None]
  - Nausea [None]
  - Heart rate decreased [None]

NARRATIVE: CASE EVENT DATE: 20200327
